FAERS Safety Report 10689930 (Version 1)
Quarter: 2015Q1

REPORT INFORMATION
  Report Type: Spontaneous
  Country: JP (occurrence: JP)
  Receive Date: 20150105
  Receipt Date: 20150105
  Transmission Date: 20150720
  Serious: Yes (Other)
  Sender: FDA-Public Use
  Company Number: JP-CIPLA LTD.-2014JP02971

PATIENT

DRUGS (2)
  1. GEMCITABINE [Suspect]
     Active Substance: GEMCITABINE\GEMCITABINE HYDROCHLORIDE
     Indication: BILE DUCT CANCER
     Dosage: 1000 MG/M2, PER 30 MINS, ON DAY 1, DAY 8, AND DAY 15
  2. ELPAMOTIDE [Suspect]
     Active Substance: ELPAMOTIDE
     Indication: BILE DUCT CANCER
     Dosage: 2.0 MG/ML, PER 30 MIN, ON DAY 1, DAY 8, DAY 15 AND DAY 22
     Route: 058

REACTIONS (1)
  - Blood glucose increased [Unknown]
